FAERS Safety Report 10969830 (Version 1)
Quarter: 2015Q1

REPORT INFORMATION
  Report Type: Spontaneous
  Country: PL (occurrence: None)
  Receive Date: 20150327
  Receipt Date: 20150327
  Transmission Date: 20150721
  Serious: Yes (Life-Threatening, Hospitalization)
  Sender: FDA-Public Use
  Company Number: COR_00269_2015

PATIENT
  Age: 28 Year

DRUGS (7)
  1. CYCLOPHOSPHAMIDE (CYCLOPHOSPHAMIDE) [Suspect]
     Active Substance: CYCLOPHOSPHAMIDE
     Indication: HODGKIN^S DISEASE
     Dosage: (DF)
  2. ETOPOSIDE (ETOPOSIDE) [Suspect]
     Active Substance: ETOPOSIDE
     Indication: HODGKIN^S DISEASE
     Dosage: (DF)
  3. BLEOMYCIN [Suspect]
     Active Substance: BLEOMYCIN SULFATE
     Indication: HODGKIN^S DISEASE
     Dosage: (DF)
  4. VINCRISTINE (VINCRISTINE) [Suspect]
     Active Substance: VINCRISTINE
     Indication: HODGKIN^S DISEASE
     Dosage: (DF)
  5. PROCARBAZINE (PROCARBAZINE) [Suspect]
     Active Substance: PROCARBAZINE
     Indication: HODGKIN^S DISEASE
     Dosage: (DF)
  6. DOXORUBICIN (DOXORUBICIN) [Suspect]
     Active Substance: DOXORUBICIN
     Indication: HODGKIN^S DISEASE
     Dosage: (DF)
  7. PREDNISONE (PREDNISONE) [Suspect]
     Active Substance: PREDNISONE
     Indication: HODGKIN^S DISEASE
     Dosage: (DF)

REACTIONS (11)
  - Anastomotic leak [None]
  - Gastritis haemorrhagic [None]
  - Fungal infection [None]
  - Abdominal pain [None]
  - Cardiac arrest [None]
  - Multi-organ failure [None]
  - Gastrointestinal necrosis [None]
  - Septic shock [None]
  - Bacterial infection [None]
  - Gastrointestinal haemorrhage [None]
  - Necrotising gastritis [None]
